FAERS Safety Report 10207028 (Version 1)
Quarter: 2014Q2

REPORT INFORMATION
  Report Type: Spontaneous
  Country: JP (occurrence: JP)
  Receive Date: 20140530
  Receipt Date: 20140530
  Transmission Date: 20141212
  Serious: Yes (Other)
  Sender: FDA-Public Use
  Company Number: JP-PFIZER INC-2014146786

PATIENT
  Age: 21 Year
  Sex: Female

DRUGS (3)
  1. MEDROL [Suspect]
     Indication: THERAPEUTIC PROCEDURE
     Dosage: 4 MG (0.17 MG/KG/D)
  2. TACROLIMUS [Suspect]
     Indication: THERAPEUTIC PROCEDURE
  3. EVEROLIMUS [Suspect]
     Indication: THERAPEUTIC PROCEDURE

REACTIONS (1)
  - Diabetes mellitus [Unknown]
